FAERS Safety Report 11026246 (Version 1)
Quarter: 2015Q2

REPORT INFORMATION
  Report Type: Spontaneous
  Country: US (occurrence: None)
  Receive Date: 20150413
  Receipt Date: 20150413
  Transmission Date: 20150821
  Serious: Yes (Disabling)
  Sender: FDA-Public Use
  Company Number: None

PATIENT
  Age: 47 Year
  Sex: Female
  Weight: 91.63 kg

DRUGS (13)
  1. ATORVASTATIN [Concomitant]
     Active Substance: ATORVASTATIN
  2. METFORMIN [Concomitant]
     Active Substance: METFORMIN HYDROCHLORIDE
  3. CYMBALTA [Suspect]
     Active Substance: DULOXETINE HYDROCHLORIDE
     Indication: ANXIETY
     Route: 048
  4. SERTRALINE HCL [Concomitant]
     Active Substance: SERTRALINE HYDROCHLORIDE
  5. VITAMINS [Concomitant]
     Active Substance: VITAMINS
  6. DULOXETINE DELAYED-RELEASE [Suspect]
     Active Substance: DULOXETINE
  7. CYMBOLTA [Concomitant]
  8. CALCIUM [Concomitant]
     Active Substance: CALCIUM
  9. FLAXSEED [Concomitant]
     Active Substance: FLAX SEED
  10. CYMBALTA [Suspect]
     Active Substance: DULOXETINE HYDROCHLORIDE
     Indication: MAJOR DEPRESSION
     Route: 048
  11. BUPROPION [Concomitant]
     Active Substance: BUPROPION
  12. VITAMEN D3 [Concomitant]
  13. OMEPRAZOLE DR [Concomitant]
     Active Substance: OMEPRAZOLE

REACTIONS (1)
  - Micturition urgency [None]

NARRATIVE: CASE EVENT DATE: 201503
